FAERS Safety Report 8042096-4 (Version None)
Quarter: 2012Q1

REPORT INFORMATION
  Report Type: 
  Country: None (occurrence: None)
  Receive Date: 20120112
  Receipt Date: 20111230
  Transmission Date: 20120608
  Serious: Yes (Other)
  Sender: FDA-Public Use
  Company Number: US-RB-032729-12

PATIENT
  Age: 76 Year
  Sex: Female

DRUGS (2)
  1. MUCINEX DM [Suspect]
     Route: 048
     Dates: start: 20111213
  2. MUCINEX DM [Suspect]
     Indication: PRODUCT USED FOR UNKNOWN INDICATION
     Route: 048
     Dates: start: 20111201

REACTIONS (4)
  - ABNORMAL DREAMS [None]
  - DIZZINESS [None]
  - GAIT DISTURBANCE [None]
  - HALLUCINATION [None]
